FAERS Safety Report 4680798-8 (Version None)
Quarter: 2005Q2

REPORT INFORMATION
  Report Type: 
  Country: None (occurrence: None)
  Receive Date: 20050601
  Receipt Date: 20050601
  Transmission Date: 20051028
  Serious: No
  Sender: FDA-Public Use
  Company Number: None

PATIENT
  Age: 11 Year
  Sex: Male
  Weight: 30 kg

DRUGS (5)
  1. PIPERACILLIN/TAZOBACTAM [Suspect]
     Indication: PYREXIA
     Dosage: 3.375GM (100MG/KG) IV
     Route: 042
     Dates: start: 20050208
  2. PIPERACILLIN/TAZOBACTAM [Suspect]
     Indication: SEPSIS
     Dosage: 3.375GM (100MG/KG) IV
     Route: 042
     Dates: start: 20050208
  3. METOCLOPRAMIDE [Concomitant]
  4. LANSOPRAZOLE [Concomitant]
  5. CLONAZEPAM [Concomitant]

REACTIONS (2)
  - ANAPHYLACTIC REACTION [None]
  - HYPERSENSITIVITY [None]
